FAERS Safety Report 10844804 (Version 2)
Quarter: 2015Q1

REPORT INFORMATION
  Report Type: Spontaneous
  Country: US (occurrence: US)
  Receive Date: 20150220
  Receipt Date: 20150226
  Transmission Date: 20150721
  Serious: No
  Sender: FDA-Public Use
  Company Number: US-MYLANLABS-2014M1008183

PATIENT
  Age: 61 Year
  Sex: Female

DRUGS (2)
  1. TRETINOIN CREAM [Suspect]
     Active Substance: TRETINOIN
     Dosage: UNK, HS
     Route: 061
  2. TRETINOIN CREAM [Suspect]
     Active Substance: TRETINOIN
     Dosage: UNK, QD
     Route: 061
     Dates: start: 201112

REACTIONS (4)
  - Application site erythema [Recovered/Resolved]
  - Application site dryness [Recovered/Resolved]
  - Application site inflammation [Recovered/Resolved]
  - Application site irritation [Recovered/Resolved]

NARRATIVE: CASE EVENT DATE: 20141008
